FAERS Safety Report 7364718-3 (Version None)
Quarter: 2011Q1

REPORT INFORMATION
  Report Type: 
  Country: None (occurrence: None)
  Receive Date: 20110321
  Receipt Date: 20110315
  Transmission Date: 20110831
  Serious: Yes (Life-Threatening)
  Sender: FDA-Public Use
  Company Number: FR-ASTRAZENECA-2011SE14683

PATIENT
  Sex: Female

DRUGS (8)
  1. SUFENTANIL MERCK [Suspect]
     Indication: INDUCTION OF ANAESTHESIA
     Route: 042
     Dates: start: 20110124, end: 20110124
  2. CELOCURINE [Suspect]
     Indication: INDUCTION OF ANAESTHESIA
     Route: 042
     Dates: start: 20110124, end: 20110124
  3. SINGULAIR [Concomitant]
  4. PRAVASTATIN [Concomitant]
  5. DIPRIVAN [Suspect]
     Indication: INDUCTION OF ANAESTHESIA
     Route: 042
     Dates: start: 20110124, end: 20110124
  6. KARDEGIC [Concomitant]
  7. ZOLPIDEM [Concomitant]
  8. NIMBEX [Suspect]
     Indication: INDUCTION OF ANAESTHESIA
     Route: 042
     Dates: start: 20110124, end: 20110124

REACTIONS (4)
  - RASH [None]
  - CIRCULATORY COLLAPSE [None]
  - BRONCHOSPASM [None]
  - SHOCK [None]
